FAERS Safety Report 8026562-3 (Version None)
Quarter: 2012Q1

REPORT INFORMATION
  Report Type: 
  Country: None (occurrence: None)
  Receive Date: 20120106
  Receipt Date: 20120103
  Transmission Date: 20120608
  Serious: Yes (Hospitalization, Other)
  Sender: FDA-Public Use
  Company Number: US-BIOGENIDEC-2011BI042059

PATIENT
  Age: 57 Year
  Sex: Female

DRUGS (3)
  1. TYSABRI [Suspect]
     Indication: MULTIPLE SCLEROSIS
     Route: 042
     Dates: start: 20080731, end: 20091204
  2. TYSABRI [Suspect]
     Route: 042
     Dates: start: 20100223
  3. MACRODANTIN [Concomitant]

REACTIONS (5)
  - ASTHENIA [None]
  - ADVERSE DRUG REACTION [None]
  - CYSTITIS [None]
  - HEPATITIS [None]
  - GAIT DISTURBANCE [None]
